FAERS Safety Report 20060757 (Version 6)
Quarter: 2022Q2

REPORT INFORMATION
  Report Type: Spontaneous
  Country: JP (occurrence: JP)
  Receive Date: 20211112
  Receipt Date: 20220621
  Transmission Date: 20220721
  Serious: Yes (Hospitalization)
  Sender: FDA-Public Use
  Company Number: JP-AMGEN-JPNSP2021163398

PATIENT
  Age: 84 Year
  Sex: Female
  Weight: 50 kg

DRUGS (7)
  1. EVENITY [Suspect]
     Active Substance: ROMOSOZUMAB-AQQG
     Indication: Osteoporosis
     Dosage: 210 MILLIGRAM
     Route: 058
     Dates: start: 20211018, end: 20211018
  2. ADALAT [Concomitant]
     Active Substance: NIFEDIPINE
     Indication: Hypertension
     Dosage: 20 MILLIGRAM, QD, 20 MILLIGRAM, BID (AFTER BREAKFAST, AFTER DINNER)
  3. BROTIZOLAM [Concomitant]
     Active Substance: BROTIZOLAM
     Indication: Insomnia
     Dosage: 0.25 MILLIGRAM, QD (BEFORE BEDTIME)
  4. OPALMON [Concomitant]
     Active Substance: LIMAPROST
     Indication: Lumbar spinal stenosis
     Dosage: 5 MICROGRAM, TID (AFTER EACH MEAL)
  5. ELDECALCITOL [Concomitant]
     Active Substance: ELDECALCITOL
     Indication: Osteoporosis
     Dosage: 0.75 MICROGRAM, QD (AFTER BREAKFAST)
  6. Acinon [Concomitant]
     Indication: Gastric ulcer
     Dosage: 75 MILLIGRAM, QD, 75 MILLIGRAM, BID (AFTER BREAKFAST, AFTER DINNER)
  7. LYRICA [Concomitant]
     Active Substance: PREGABALIN
     Indication: Sciatica
     Dosage: 25 MILLIGRAM, BID (AFTER BREAKFAST, AFTER DINNER)
     Dates: start: 20191002

REACTIONS (1)
  - Muscular weakness [Recovered/Resolved]

NARRATIVE: CASE EVENT DATE: 20211018
